FAERS Safety Report 23365233 (Version 1)
Quarter: 2024Q1

REPORT INFORMATION
  Report Type: Spontaneous
  Country: None (occurrence: US)
  Receive Date: 20240104
  Receipt Date: 20240104
  Transmission Date: 20240409
  Serious: No
  Sender: FDA-Public Use
  Company Number: US-STI Pharma LLC-2150123

PATIENT
  Age: 67 Year
  Sex: Female

DRUGS (3)
  1. ETHAMBUTOL HYDROCHLORIDE [Suspect]
     Active Substance: ETHAMBUTOL HYDROCHLORIDE
  2. AZITHROMYCIN [Concomitant]
     Active Substance: AZITHROMYCIN
  3. RIFAMPIN [Concomitant]
     Active Substance: RIFAMPIN

REACTIONS (5)
  - Drug intolerance [Unknown]
  - Refusal of treatment by relative [Unknown]
  - Pulmonary tuberculosis [Unknown]
  - Cough [Unknown]
  - Atypical mycobacterium test positive [Unknown]
